FAERS Safety Report 9285280 (Version 2)
Quarter: 2013Q2

REPORT INFORMATION
  Report Type: Spontaneous
  Country: DE (occurrence: DE)
  Receive Date: 20130513
  Receipt Date: 20130604
  Transmission Date: 20140414
  Serious: Yes (Other)
  Sender: FDA-Public Use
  Company Number: DE-JNJFOC-20130503987

PATIENT
  Age: 45 Year
  Sex: Female
  Weight: 99 kg

DRUGS (5)
  1. REMICADE [Suspect]
     Indication: COLITIS ULCERATIVE
     Route: 042
     Dates: start: 20100219
  2. REMICADE [Suspect]
     Indication: COLITIS ULCERATIVE
     Dosage: RECEIVED A TOTAL OF 20 INFUSIONS
     Route: 042
     Dates: end: 20130301
  3. REMICADE [Suspect]
     Indication: COLITIS ULCERATIVE
     Dosage: START DATE REPORTED AS 1 YEAR PRIOR TO THE DATE OF REPORT
     Route: 042
     Dates: start: 2012
  4. AZATHIOPRINE [Suspect]
     Indication: COLITIS ULCERATIVE
     Dosage: START DATE: 5 YEARS PRIOR TO THE DATE OF REPORT
     Route: 048
     Dates: start: 200505, end: 201303
  5. PANTOZOL [Concomitant]
     Indication: GASTROOESOPHAGEAL REFLUX DISEASE
     Route: 065
     Dates: start: 201002

REACTIONS (1)
  - Hodgkin^s disease [Unknown]
